FAERS Safety Report 9511453 (Version 1)
Quarter: 2013Q1

REPORT INFORMATION
  Report Type: Spontaneous
  Country: US (occurrence: None)
  Receive Date: 20130305
  Receipt Date: 20130305
  Transmission Date: 20140127
  Serious: Yes (Hospitalization)
  Sender: FDA-Public Use
  Company Number: 163-21880-12021392

PATIENT
  Age: 75 Year
  Sex: Male

DRUGS (9)
  1. REVLIMID (LENALIDOMIDE) (25 MILLIGRAM, CAPSULES) [Suspect]
     Indication: PLASMA CELL MYELOMA
     Dosage: 25 MG, 1 IN 1 D, PO
     Route: 048
     Dates: start: 20110901
  2. TRAVATAN (TRAVOPROST) [Concomitant]
  3. SIMVASTATIN (SIMVASTATIN) [Concomitant]
  4. MEN^S MULTIVATIMS (MULTIVITAMINS) [Concomitant]
  5. GLIPIZIDE (GLIPIZIDE) [Concomitant]
  6. FLUTICASONE PROPIONATE (FLUTICASONE PROPIONATE) [Concomitant]
  7. FLOMAX (TAMSULOSIN HYDROCHLORIDE) [Concomitant]
  8. FINASTERIDE (FINASTERIDE) [Concomitant]
  9. DEXAMETHASONE (DEXAMETHASONE) [Concomitant]

REACTIONS (1)
  - Transient ischaemic attack [None]
